FAERS Safety Report 6958244-0 (Version None)
Quarter: 2010Q3

REPORT INFORMATION
  Report Type: 
  Country: None (occurrence: None)
  Receive Date: 20100831
  Receipt Date: 20100823
  Transmission Date: 20110219
  Serious: Yes (Other)
  Sender: FDA-Public Use
  Company Number: IE-JNJFOC-20100807568

PATIENT
  Age: 60 Year
  Sex: Female

DRUGS (4)
  1. REMICADE [Suspect]
     Indication: CROHN'S DISEASE
     Route: 042
  2. ATACAND [Concomitant]
  3. CENTYL K [Concomitant]
  4. ZOTON [Concomitant]

REACTIONS (5)
  - CHEST DISCOMFORT [None]
  - DYSPNOEA [None]
  - FLUSHING [None]
  - HYPERTENSION [None]
  - MALAISE [None]
